FAERS Safety Report 25773574 (Version 3)
Quarter: 2025Q4

REPORT INFORMATION
  Report Type: Spontaneous
  Country: US (occurrence: US)
  Receive Date: 20250908
  Receipt Date: 20251218
  Transmission Date: 20260119
  Serious: Yes (Other)
  Sender: BRISTOL-MYERS SQUIBB COMPANY
  Company Number: US-BRISTOL-MYERS SQUIBB COMPANY-2025-122936

PATIENT
  Age: 73 Year
  Sex: Female
  Weight: 66.9 kg

DRUGS (1)
  1. OPDIVO [Suspect]
     Active Substance: NIVOLUMAB
     Indication: Non-small cell lung cancer
     Route: 058
     Dates: start: 20241231, end: 20250820

REACTIONS (3)
  - Arteriosclerosis coronary artery [Unknown]
  - Pericardial effusion [Unknown]
  - Aortic disorder [Unknown]

NARRATIVE: CASE EVENT DATE: 20250709
